FAERS Safety Report 6578204-1 (Version None)
Quarter: 2010Q1

REPORT INFORMATION
  Report Type: 
  Country: None (occurrence: None)
  Receive Date: 20100211
  Receipt Date: 20100209
  Transmission Date: 20100710
  Serious: Yes (Hospitalization)
  Sender: FDA-Public Use
  Company Number: IN-ROXANE LABORATORIES, INC.-2010-RO-00141RO

PATIENT
  Age: 26 Year
  Sex: Female

DRUGS (8)
  1. CYCLOPHOSPHAMIDE [Suspect]
     Indication: PEMPHIGUS
  2. DEXAMETHASONE [Suspect]
     Indication: PEMPHIGUS
  3. DEXAMETHASONE [Suspect]
     Route: 048
  4. SODIUM CHLORIDE [Suspect]
     Indication: INAPPROPRIATE ANTIDIURETIC HORMONE SECRETION
  5. PLATELETS [Concomitant]
  6. FRESH FROZEN PLASMA [Concomitant]
  7. PREDNISOLONE [Concomitant]
  8. PREDNISOLONE [Concomitant]

REACTIONS (5)
  - BLISTER [None]
  - DISSEMINATED INTRAVASCULAR COAGULATION [None]
  - INAPPROPRIATE ANTIDIURETIC HORMONE SECRETION [None]
  - RESPIRATORY FAILURE [None]
  - SEPSIS [None]
